FAERS Safety Report 6123934-9 (Version None)
Quarter: 2009Q1

REPORT INFORMATION
  Report Type: 
  Country: None (occurrence: None)
  Receive Date: 20090319
  Receipt Date: 20090310
  Transmission Date: 20090719
  Serious: Yes (Hospitalization)
  Sender: FDA-Public Use
  Company Number: US-BIOGENIDEC-2009BI007893

PATIENT
  Sex: Female

DRUGS (2)
  1. TYSABRI [Suspect]
     Indication: MULTIPLE SCLEROSIS
     Route: 042
     Dates: start: 20061101, end: 20061101
  2. TYSABRI [Suspect]
     Route: 042
     Dates: start: 20080722

REACTIONS (7)
  - BLINDNESS UNILATERAL [None]
  - DRUG INEFFECTIVE [None]
  - MULTIPLE SCLEROSIS [None]
  - NEGLECT OF PERSONAL APPEARANCE [None]
  - URINARY TRACT INFECTION [None]
  - WEIGHT ABNORMAL [None]
  - WEIGHT DECREASED [None]
